FAERS Safety Report 5837367-3 (Version None)
Quarter: 2008Q3

REPORT INFORMATION
  Report Type: 
  Country: None (occurrence: None)
  Receive Date: 20080807
  Receipt Date: 20080731
  Transmission Date: 20090109
  Serious: Yes (Death, Hospitalization, Other)
  Sender: FDA-Public Use
  Company Number: GB-ELI_LILLY_AND_COMPANY-GB200804004699

PATIENT
  Age: 60 Year
  Sex: Male
  Weight: 111.6 kg

DRUGS (7)
  1. BYETTA [Suspect]
     Indication: BLOOD GLUCOSE
     Dosage: 5 UG, UNKNOWN
     Route: 058
  2. BYETTA [Suspect]
     Dosage: 10 UG, UNKNOWN
     Route: 058
     Dates: start: 20080129
  3. METFORMIN HCL [Concomitant]
     Dosage: 500 MG, 2/D
     Route: 065
  4. ASPIRIN [Concomitant]
     Dosage: 75 MG, DAILY (1/D)
     Route: 065
  5. SIMVASTATIN [Concomitant]
     Dosage: 20 MG, DAILY (1/D)
     Route: 065
  6. RAMIPRIL [Concomitant]
     Dosage: 10 MG, UNKNOWN
     Route: 065
  7. INSULIN [Concomitant]
     Dosage: UNK, UNKNOWN
     Route: 065

REACTIONS (3)
  - ARTERIOSCLEROSIS CORONARY ARTERY [None]
  - CORONARY ARTERY THROMBOSIS [None]
  - PERIARTHRITIS [None]
